FAERS Safety Report 6245858-9 (Version None)
Quarter: 2009Q2

REPORT INFORMATION
  Report Type: 
  Country: None (occurrence: None)
  Receive Date: 20090626
  Receipt Date: 20090619
  Transmission Date: 20091009
  Serious: Yes (Hospitalization)
  Sender: FDA-Public Use
  Company Number: US-BRISTOL-MYERS SQUIBB COMPANY-14673974

PATIENT
  Age: 65 Year
  Sex: Male
  Weight: 54 kg

DRUGS (2)
  1. DASATINIB [Suspect]
     Indication: LUNG NEOPLASM MALIGNANT
     Route: 048
     Dates: start: 20071113, end: 20071208
  2. CETUXIMAB [Suspect]
     Indication: LUNG NEOPLASM MALIGNANT
     Dosage: FIRST INFUSION ON 14NOV07.
     Route: 042
     Dates: start: 20071206, end: 20071206

REACTIONS (1)
  - PNEUMONIA [None]
